FAERS Safety Report 25388348 (Version 1)
Quarter: 2025Q2

REPORT INFORMATION
  Report Type: Spontaneous
  Country: JP (occurrence: JP)
  Receive Date: 20250603
  Receipt Date: 20250603
  Transmission Date: 20250716
  Serious: Yes (Death, Other)
  Sender: ABBVIE
  Company Number: JP-ABBVIE-6308103

PATIENT

DRUGS (2)
  1. VENCLEXTA [Suspect]
     Active Substance: VENETOCLAX
     Indication: Acute myeloid leukaemia
     Route: 048
  2. AZACITIDINE [Concomitant]
     Active Substance: AZACITIDINE
     Indication: Blastic plasmacytoid dendritic cell neoplasia
     Route: 058

REACTIONS (7)
  - Death [Fatal]
  - Febrile neutropenia [Unknown]
  - Infection [Unknown]
  - Renal disorder [Unknown]
  - Nausea [Unknown]
  - Off label use [Unknown]
  - Liver disorder [Unknown]
